FAERS Safety Report 9504779 (Version 1)
Quarter: 2013Q1

REPORT INFORMATION
  Report Type: Spontaneous
  Country: US (occurrence: None)
  Receive Date: 20130225
  Receipt Date: 20130225
  Transmission Date: 20140127
  Serious: Yes (Other)
  Sender: FDA-Public Use
  Company Number: 2012-338

PATIENT
  Age: 69 Year
  Sex: Male

DRUGS (3)
  1. PRIALT (ZICONOTIDE) INTRATHECAL INFUSION [Suspect]
     Indication: SPINAL PAIN
     Route: 037
  2. PRIALT (ZICONOTIDE) INTRATHECAL INFUSION [Suspect]
     Indication: PROCEDURAL PAIN
     Route: 037
  3. PRIALT (ZICONOTIDE) INTRATHECAL INFUSION [Suspect]
     Route: 037

REACTIONS (3)
  - Urinary retention [None]
  - Abdominal distension [None]
  - Nervous system disorder [None]
